FAERS Safety Report 4751196-3 (Version None)
Quarter: 2005Q3

REPORT INFORMATION
  Report Type: 
  Country: None (occurrence: None)
  Receive Date: 20050822
  Receipt Date: 20050822
  Transmission Date: 20060218
  Serious: No
  Sender: FDA-Public Use
  Company Number: None

PATIENT
  Age: 4 Year
  Sex: Female
  Weight: 14.5151 kg

DRUGS (1)
  1. ROBITUSSIN PEDIATRIC COUGH AND COLD [Suspect]
     Indication: COUGH
     Dosage: (1) DOSE /(1) TSP

REACTIONS (3)
  - FEAR [None]
  - FORMICATION [None]
  - HALLUCINATION, VISUAL [None]
